FAERS Safety Report 5012860-4 (Version None)
Quarter: 2006Q2

REPORT INFORMATION
  Report Type: 
  Country: None (occurrence: None)
  Receive Date: 20060530
  Receipt Date: 20060523
  Transmission Date: 20061013
  Serious: Yes (Death)
  Sender: FDA-Public Use
  Company Number: PHHO2006GB08549

PATIENT

DRUGS (1)
  1. ICL670 VS PLACEBO [Suspect]
     Route: 048

REACTIONS (1)
  - APLASTIC ANAEMIA [None]
